FAERS Safety Report 17099348 (Version 4)
Quarter: 2019Q4

REPORT INFORMATION
  Report Type: Report from Study
  Country: ES (occurrence: ES)
  Receive Date: 20191202
  Receipt Date: 20191218
  Transmission Date: 20200122
  Serious: Yes (Hospitalization)
  Sender: FDA-Public Use
  Company Number: ES-EISAI MEDICAL RESEARCH-EC-2019-064720

PATIENT
  Age: 74 Year
  Sex: Male
  Weight: 85 kg

DRUGS (12)
  1. PEMBROLIZUMAB. [Suspect]
     Active Substance: PEMBROLIZUMAB
     Route: 041
     Dates: start: 20191002, end: 20191002
  2. PEMBROLIZUMAB. [Suspect]
     Active Substance: PEMBROLIZUMAB
     Indication: MALIGNANT MELANOMA
     Route: 041
     Dates: start: 20190731, end: 20190911
  3. METFORMIN [Concomitant]
     Active Substance: METFORMIN HYDROCHLORIDE
  4. LENVATINIB [Suspect]
     Active Substance: LENVATINIB
     Route: 048
     Dates: start: 20191119
  5. CARDURAN NEO [Concomitant]
     Active Substance: DOXAZOSIN MESYLATE
     Dates: start: 201906
  6. OMEPRAZOLE. [Concomitant]
     Active Substance: OMEPRAZOLE
     Dates: start: 20190730, end: 201910
  7. SERC [Concomitant]
     Dates: start: 20190730, end: 201910
  8. LENVATINIB [Suspect]
     Active Substance: LENVATINIB
     Indication: MALIGNANT MELANOMA
     Route: 048
     Dates: start: 20190731, end: 20191022
  9. PEMBROLIZUMAB. [Suspect]
     Active Substance: PEMBROLIZUMAB
     Route: 041
     Dates: start: 20191119
  10. DUODART [Concomitant]
     Active Substance: DUTASTERIDE\TAMSULOSIN
     Dates: start: 201906
  11. CIDINE [Concomitant]
     Dates: start: 201906
  12. GABAPENTIN. [Concomitant]
     Active Substance: GABAPENTIN
     Dates: start: 201906

REACTIONS (1)
  - Renal impairment [Recovering/Resolving]

NARRATIVE: CASE EVENT DATE: 20191023
